FAERS Safety Report 18145696 (Version 2)
Quarter: 2020Q4

REPORT INFORMATION
  Report Type: Spontaneous
  Country: IN (occurrence: JP)
  Receive Date: 20200813
  Receipt Date: 20201027
  Transmission Date: 20210113
  Serious: Yes (Hospitalization)
  Sender: FDA-Public Use
  Company Number: JP-ELI_LILLY_AND_COMPANY-JP202008001551

PATIENT
  Age: 35 Year
  Sex: Male

DRUGS (8)
  1. ARIPIPRAZOLE. [Suspect]
     Active Substance: ARIPIPRAZOLE
     Indication: SCHIZOPHRENIA
     Dosage: 6 MG, UNKNOWN
     Route: 065
  2. BIPERIDEN HYDROCHLORIDE [Concomitant]
     Active Substance: BIPERIDEN HYDROCHLORIDE
     Indication: SCHIZOPHRENIA
     Dosage: 1 MG, DAILY
     Route: 048
  3. CARPIPRAMINE [Concomitant]
     Active Substance: CARPIPRAMINE
     Indication: SCHIZOPHRENIA
     Dosage: UNK, UNKNOWN
     Route: 065
  4. DOSULEPIN HYDROCHLORIDE [Concomitant]
     Active Substance: DOTHIEPIN HYDROCHLORIDE
     Indication: SCHIZOPHRENIA
     Dosage: UNK, UNKNOWN
     Route: 065
  5. BLONANSERIN [Concomitant]
     Active Substance: BLONANSERIN
     Indication: SCHIZOPHRENIA
     Dosage: UNK, UNKNOWN
     Route: 065
  6. OLANZAPINE. [Suspect]
     Active Substance: OLANZAPINE
     Indication: SCHIZOPHRENIA
     Dosage: 5 MG, DAILY
     Route: 048
  7. CLOMIPRAMINE HYDROCHLORIDE. [Concomitant]
     Active Substance: CLOMIPRAMINE HYDROCHLORIDE
     Indication: SCHIZOPHRENIA
     Dosage: UNK, UNKNOWN
     Route: 065
  8. FLUVOXAMINE MALEATE. [Concomitant]
     Active Substance: FLUVOXAMINE MALEATE
     Indication: SCHIZOPHRENIA
     Dosage: UNK, UNKNOWN
     Route: 065

REACTIONS (4)
  - Cerebellar atrophy [Unknown]
  - Cerebellar ataxia [Unknown]
  - Early onset primary dystonia [Not Recovered/Not Resolved]
  - Torticollis [Not Recovered/Not Resolved]
